FAERS Safety Report 11193725 (Version 2)
Quarter: 2015Q3

REPORT INFORMATION
  Report Type: Spontaneous
  Country: US (occurrence: US)
  Receive Date: 20150616
  Receipt Date: 20150723
  Transmission Date: 20151125
  Serious: Yes (Other)
  Sender: FDA-Public Use
  Company Number: CHPA2015US007099

PATIENT
  Age: 75 Year
  Sex: Male

DRUGS (1)
  1. VOLTAREN [Suspect]
     Active Substance: DICLOFENAC SODIUM
     Indication: ROTATOR CUFF SYNDROME
     Dosage: 2 G, PRN
     Route: 061
     Dates: start: 2013

REACTIONS (10)
  - Hypoaesthesia [Not Recovered/Not Resolved]
  - Pain in extremity [Not Recovered/Not Resolved]
  - Tendonitis [Not Recovered/Not Resolved]
  - Product use issue [Unknown]
  - Carpal tunnel syndrome [Not Recovered/Not Resolved]
  - Drug administered at inappropriate site [Unknown]
  - Musculoskeletal disorder [Not Recovered/Not Resolved]
  - Cataract [Recovering/Resolving]
  - Inappropriate schedule of drug administration [Unknown]
  - Arthralgia [Not Recovered/Not Resolved]

NARRATIVE: CASE EVENT DATE: 2013
